FAERS Safety Report 8313303-5 (Version None)
Quarter: 2012Q1

REPORT INFORMATION
  Report Type: 
  Country: None (occurrence: None)
  Receive Date: 20120315
  Receipt Date: 20110606
  Transmission Date: 20120608
  Serious: No
  Sender: FDA-Public Use
  Company Number: PHHY2011US16755

PATIENT
  Age: 37 Year
  Sex: Female

DRUGS (5)
  1. LEXAPRO [Concomitant]
  2. BUSPIRON (HYOSCINE BUTYLBROMIDE, METAMIZOLE SODIUM MONOHYDRATE) [Concomitant]
  3. FLUTICASONE PROPIONATE [Concomitant]
  4. OMEPRAZOLE [Concomitant]
  5. GILENYA [Suspect]
     Indication: MULTIPLE SCLEROSIS
     Dosage: 0.5 MG, QD, ORAL
     Route: 048
     Dates: start: 20110218

REACTIONS (6)
  - DYSPEPSIA [None]
  - SINUSITIS [None]
  - SINUS CONGESTION [None]
  - LYMPHADENOPATHY [None]
  - NECK PAIN [None]
  - ABDOMINAL DISCOMFORT [None]
